FAERS Safety Report 8965154 (Version 5)
Quarter: 2013Q1

REPORT INFORMATION
  Report Type: Spontaneous
  Country: US (occurrence: US)
  Receive Date: 20121214
  Receipt Date: 20130306
  Transmission Date: 20140127
  Serious: Yes (Death, Other)
  Sender: FDA-Public Use
  Company Number: PHEH2012US024417

PATIENT
  Age: 59 Year
  Sex: Female
  Weight: 64.4 kg

DRUGS (5)
  1. GILENYA [Suspect]
     Indication: MULTIPLE SCLEROSIS
     Dosage: 0.5 MG, QD
     Route: 048
     Dates: start: 20120418
  2. BACLOFEN [Concomitant]
     Dosage: 10 MG, QD
  3. LISINOPRIL [Concomitant]
     Indication: HYPERTENSION
     Dosage: 10 MG, QD
  4. HYDROCHLORTHIAZID [Concomitant]
     Indication: HYPERTENSION
     Dosage: UNK UKN, UNK
  5. SANCTURA [Concomitant]
     Indication: AUTOMATIC BLADDER
     Dosage: 10 MG, QD

REACTIONS (3)
  - Sudden death [Fatal]
  - Skin discolouration [Unknown]
  - White blood cell count decreased [Unknown]
